FAERS Safety Report 23848418 (Version 2)
Quarter: 2024Q2

REPORT INFORMATION
  Report Type: Spontaneous
  Country: ES (occurrence: ES)
  Receive Date: 20240513
  Receipt Date: 20240523
  Transmission Date: 20240715
  Serious: Yes (Death, Hospitalization, Other)
  Sender: FDA-Public Use
  Company Number: ES-FIDIA-20240278

PATIENT
  Sex: Female
  Weight: 58.6 kg

DRUGS (31)
  1. CYTARABINE [Suspect]
     Active Substance: CYTARABINE
     Indication: Acute myeloid leukaemia
     Dosage: 320 MG/D
     Route: 042
     Dates: start: 20230327, end: 20230506
  2. IDARUBICIN HYDROCHLORIDE [Suspect]
     Active Substance: IDARUBICIN HYDROCHLORIDE
     Indication: Acute myeloid leukaemia
     Dosage: 19 MG/D
  3. AMPHOTERICIN B [Suspect]
     Active Substance: AMPHOTERICIN B
     Indication: Respiratory tract infection fungal
  4. AMPHOTERICIN B [Suspect]
     Active Substance: AMPHOTERICIN B
     Indication: Infection prophylaxis
  5. METHYLPREDNISOLONE [Suspect]
     Active Substance: METHYLPREDNISOLONE
  6. TEICOPLANIN [Concomitant]
     Active Substance: TEICOPLANIN
     Dates: start: 20230417
  7. BROMAZEPAM [Concomitant]
     Active Substance: BROMAZEPAM
     Dates: start: 20230418
  8. GRANISETRON [Concomitant]
     Active Substance: GRANISETRON
     Dates: start: 20230427, end: 20230504
  9. DEXAMETHASONE [Concomitant]
     Active Substance: DEXAMETHASONE
     Dates: start: 20230428, end: 20230501
  10. DEXCHLORPHENIRAMINE [Concomitant]
     Active Substance: DEXCHLORPHENIRAMINE
     Dates: start: 20230430, end: 20230512
  11. AVIBACTAM SODIUM\CEFTAZIDIME [Concomitant]
     Active Substance: AVIBACTAM SODIUM\CEFTAZIDIME
     Dates: start: 20230501
  12. URSODIOL [Concomitant]
     Active Substance: URSODIOL
     Dates: start: 20230507, end: 20230515
  13. GLUCOSALINE [Concomitant]
     Dates: start: 20230417
  14. HUMAN RED BLOOD CELL [Concomitant]
     Active Substance: HUMAN RED BLOOD CELL
     Dates: start: 20230425, end: 20230425
  15. METHYLPREDNISOLONE [Concomitant]
     Active Substance: METHYLPREDNISOLONE
     Dates: start: 20230507, end: 20230511
  16. METAMIZOLE MAGNESIUM [Concomitant]
     Active Substance: METAMIZOLE MAGNESIUM
     Dates: start: 20230417, end: 20230427
  17. MEROPENEM [Concomitant]
     Active Substance: MEROPENEM
     Dates: start: 20230412, end: 20230501
  18. RASBURICASE [Concomitant]
     Active Substance: RASBURICASE
     Dates: start: 20230417
  19. PLATELETS [Concomitant]
     Active Substance: HUMAN PLATELET, ALLOGENIC
     Dates: start: 20230430, end: 20230507
  20. CALCIUM CARBONATE [Concomitant]
     Active Substance: CALCIUM CARBONATE
     Dates: start: 20230430, end: 20230504
  21. POSACONAZOLE [Concomitant]
     Active Substance: POSACONAZOLE
     Dates: start: 20230417, end: 20230507
  22. OMEPRAZOLE [Concomitant]
     Active Substance: DONEPEZIL HYDROCHLORIDE\OMEPRAZOLE\OMEPRAZOLE MAGNESIUM
     Dates: start: 20230417, end: 20230504
  23. ALLOPURINOL [Concomitant]
     Active Substance: ALLOPURINOL
     Dates: start: 20230427, end: 20230507
  24. POTASSIUM CHLORIDE [Concomitant]
     Active Substance: POTASSIUM CHLORIDE
     Dates: start: 20230430
  25. CALCIUM GLUCONATE [Concomitant]
     Active Substance: CALCIUM GLUCONATE
     Dates: start: 20230504
  26. FUROSEMIDE [Concomitant]
     Active Substance: FUROSEMIDE
     Dates: start: 20230428
  27. AMIKACIN [Concomitant]
     Active Substance: AMIKACIN
  28. DEXTROSE [Concomitant]
     Active Substance: DEXTROSE\DEXTROSE MONOHYDRATE
     Dates: start: 20230417, end: 20230418
  29. ONDANSETRON [Concomitant]
     Active Substance: ONDANSETRON
     Dates: start: 20230502
  30. AMINO ACIDS\DEXTROSE\ELECTROLYTES NOS\SOYBEAN OIL [Concomitant]
     Active Substance: AMINO ACIDS\DEXTROSE\ELECTROLYTES NOS\SOYBEAN OIL
     Dates: start: 20230504
  31. AMLODIPINE BESYLATE [Concomitant]
     Active Substance: AMLODIPINE BESYLATE
     Dates: start: 20230419

REACTIONS (3)
  - Neoplasm progression [Fatal]
  - Parotitis [Recovered/Resolved]
  - Respiratory tract infection fungal [Recovered/Resolved]

NARRATIVE: CASE EVENT DATE: 20230505
